FAERS Safety Report 7529479-3 (Version None)
Quarter: 2011Q2

REPORT INFORMATION
  Report Type: 
  Country: None (occurrence: None)
  Receive Date: 20110607
  Receipt Date: 20050630
  Transmission Date: 20111010
  Serious: Yes (Hospitalization)
  Sender: FDA-Public Use
  Company Number: PHHO2004CA16378

PATIENT
  Sex: Male

DRUGS (4)
  1. CLOZARIL [Suspect]
     Indication: SCHIZOPHRENIA
     Dosage: 600 MG, QHS
     Route: 048
  2. CLONAZEPAM [Concomitant]
     Dosage: 0.5 MG, BID
     Route: 048
  3. VALPROATE SODIUM [Concomitant]
     Dosage: 500 MG, BID
     Route: 048
  4. AMLODIPINE [Concomitant]
     Dosage: 5 MG, QD
     Route: 048

REACTIONS (3)
  - OESOPHAGITIS [None]
  - OESOPHAGEAL ULCER [None]
  - GASTRIC POLYPS [None]
